FAERS Safety Report 22789460 (Version 10)
Quarter: 2025Q3

REPORT INFORMATION
  Report Type: Report from Study
  Country: CN (occurrence: CN)
  Receive Date: 20230804
  Receipt Date: 20250908
  Transmission Date: 20251020
  Serious: Yes (Other)
  Sender: TAKEDA
  Company Number: CN-TAKEDA-2022TUS048848

PATIENT
  Age: 56 Year
  Sex: Male
  Weight: 59.6 kg

DRUGS (15)
  1. IXAZOMIB [Suspect]
     Active Substance: IXAZOMIB
     Indication: Plasma cell myeloma
     Dosage: 4 MILLIGRAM, 1/WEEK
     Dates: start: 20220418, end: 202210
  2. CALCIUM CARBONATE\CHOLECALCIFEROL [Concomitant]
     Active Substance: CALCIUM CARBONATE\CHOLECALCIFEROL
     Indication: Plasma cell myeloma
     Dosage: 600 MILLIGRAM, QD
     Dates: start: 20220602, end: 20220703
  3. CALCITRIOL [Concomitant]
     Active Substance: CALCITRIOL
     Indication: Plasma cell myeloma
     Dosage: 0.25 MICROGRAM, QD
     Dates: start: 20220602, end: 20220626
  4. METHYLCOBALAMIN [Concomitant]
     Active Substance: METHYLCOBALAMIN
     Indication: Prophylaxis
     Dosage: 500 MICROGRAM, TID
     Dates: start: 20220602, end: 20220626
  5. ENTECAVIR [Concomitant]
     Active Substance: ENTECAVIR
     Indication: Hepatitis B
     Dosage: 0.5 MILLIGRAM, QD
     Dates: start: 20220602, end: 20220703
  6. FAMVIR [Concomitant]
     Active Substance: FAMCICLOVIR
     Indication: Prophylaxis
     Dosage: 0.25 GRAM, TID
     Dates: start: 20220602, end: 20220624
  7. VITAMIN B1 [Concomitant]
     Active Substance: THIAMINE HYDROCHLORIDE
     Indication: Vitamin supplementation
     Dosage: 10 MILLIGRAM, TID
     Dates: start: 20220622, end: 20220626
  8. TROPISETRON [Concomitant]
     Active Substance: TROPISETRON
     Indication: Vomiting
     Dosage: 5 MILLIGRAM, QD
     Dates: start: 20220622, end: 20220625
  9. CYCLOPHOSPHAMIDE [Concomitant]
     Active Substance: CYCLOPHOSPHAMIDE
     Indication: Plasma cell myeloma
     Dosage: 2 GRAM, QD
     Dates: start: 20220622, end: 20220625
  10. MESNA [Concomitant]
     Active Substance: MESNA
     Indication: Plasma cell myeloma
     Dosage: 40 MILLILITER, TID
     Dates: start: 20220622, end: 20220625
  11. FUROSEMIDE [Concomitant]
     Active Substance: FUROSEMIDE
     Indication: Polyuria
     Dosage: 20 MILLIGRAM, QD
     Dates: start: 20220622, end: 20220625
  12. ZOLEDRONIC ACID [Concomitant]
     Active Substance: ZOLEDRONIC ACID
     Indication: Bone marrow necrosis
     Dates: start: 20221107, end: 20221107
  13. ZOLEDRONIC ACID [Concomitant]
     Active Substance: ZOLEDRONIC ACID
     Indication: Prophylaxis
  14. LIDOCAINE HYDROCHLORIDE [Concomitant]
     Active Substance: LIDOCAINE HYDROCHLORIDE
     Indication: Aspiration bone marrow
     Route: 061
     Dates: start: 20221107, end: 20221107
  15. VALACYCLOVIR HYDROCHLORIDE [Concomitant]
     Active Substance: VALACYCLOVIR HYDROCHLORIDE
     Indication: Herpes virus infection
     Dates: start: 20221107, end: 20221112

REACTIONS (27)
  - Hypogammaglobulinaemia [Recovered/Resolved]
  - Hypokalaemia [Recovered/Resolved]
  - Pneumonia [Recovered/Resolved]
  - Lymphocyte count decreased [Not Recovered/Not Resolved]
  - Platelet count decreased [Recovered/Resolved]
  - Iron metabolism disorder [Recovered/Resolved]
  - Lipid metabolism disorder [Recovering/Resolving]
  - Anaemia [Unknown]
  - White blood cell count decreased [Not Recovered/Not Resolved]
  - Neutrophil count decreased [Recovered/Resolved]
  - Hypocalcaemia [Recovered/Resolved]
  - Hyponatraemia [Recovered/Resolved]
  - Beta 2 microglobulin increased [Not Recovered/Not Resolved]
  - Palpitations [Recovered/Resolved]
  - Hypoproteinaemia [Recovered/Resolved]
  - Hypoglobulinaemia [Recovered/Resolved]
  - Blood glucose increased [Not Recovered/Not Resolved]
  - Tinnitus [Recovered/Resolved]
  - White blood cell count increased [Recovered/Resolved]
  - Hypocalcaemia [Recovered/Resolved]
  - Asthenia [Recovered/Resolved]
  - Dizziness [Recovered/Resolved]
  - Pyrexia [Recovered/Resolved]
  - Back pain [Unknown]
  - Nausea [Recovered/Resolved]
  - Diarrhoea [Recovered/Resolved]
  - Off label use [Recovered/Resolved]

NARRATIVE: CASE EVENT DATE: 20220602
